FAERS Safety Report 7979291-6 (Version None)
Quarter: 2011Q4

REPORT INFORMATION
  Report Type: 
  Country: None (occurrence: None)
  Receive Date: 20111214
  Receipt Date: 20111213
  Transmission Date: 20120403
  Serious: No
  Sender: FDA-Public Use
  Company Number: US-BAYER-2011-119622

PATIENT
  Age: 67 Year
  Sex: Female

DRUGS (7)
  1. AMPYRA [Concomitant]
  2. NIFEDIPINE [Concomitant]
  3. MULTI-VITAMIN [Concomitant]
  4. BETASERON [Suspect]
     Dosage: 3 MG, QOD
     Route: 058
  5. LIPITOR [Concomitant]
  6. DITROPAN [Concomitant]
  7. ASPIRIN [Concomitant]

REACTIONS (2)
  - HYPOAESTHESIA [None]
  - OEDEMA PERIPHERAL [None]
